FAERS Safety Report 4733139-1 (Version None)
Quarter: 2005Q3

REPORT INFORMATION
  Report Type: 
  Country: None (occurrence: None)
  Receive Date: 20050803
  Receipt Date: 20050509
  Transmission Date: 20060218
  Serious: Yes (Death, Other)
  Sender: FDA-Public Use
  Company Number: PHNR2005AU00844

PATIENT
  Age: 75 Year
  Sex: Male

DRUGS (11)
  1. ZOMETA [Suspect]
     Indication: MULTIPLE MYELOMA
     Dosage: 4 MG, UNK
     Dates: start: 20040317, end: 20041020
  2. PAMIDRONATE DISODIUM [Suspect]
     Indication: MULTIPLE MYELOMA
     Dates: start: 19990201, end: 20040101
  3. PREDNISONE [Concomitant]
     Indication: MULTIPLE MYELOMA
     Dosage: 75 MG QD 4 DAYS Q6W
     Dates: start: 19990101, end: 20010101
  4. PREDNISONE [Concomitant]
     Dosage: 75 MG QD 4 DAYS Q6W
     Dates: start: 20020201, end: 20030101
  5. PREDNISONE [Concomitant]
     Dosage: 50 MG, ALTERNATE DAYS
     Dates: start: 20030101, end: 20030801
  6. PREDNISONE [Concomitant]
     Dosage: 25 MG, ALTERNATE DAYS
     Dates: start: 20030801, end: 20050501
  7. FELODIPINE [Concomitant]
     Indication: HYPERTENSION
  8. ATENOLOL [Concomitant]
     Indication: HYPERTENSION
  9. WARFARIN [Concomitant]
     Indication: CEREBROVASCULAR ACCIDENT
  10. FUROSEMIDE [Concomitant]
     Indication: CARDIAC FAILURE CONGESTIVE
  11. OMEPRAZOLE [Concomitant]
     Indication: DYSPEPSIA

REACTIONS (8)
  - ASEPTIC NECROSIS BONE [None]
  - BONE DISORDER [None]
  - GASTROINTESTINAL CARCINOMA [None]
  - LARGE INTESTINAL OBSTRUCTION [None]
  - PAIN IN JAW [None]
  - SURGERY [None]
  - TOOTH ABSCESS [None]
  - TOOTH EXTRACTION [None]
